FAERS Safety Report 4758437-7 (Version None)
Quarter: 2005Q3

REPORT INFORMATION
  Report Type: 
  Country: None (occurrence: None)
  Receive Date: 20050829
  Receipt Date: 20050816
  Transmission Date: 20060218
  Serious: Yes (Hospitalization)
  Sender: FDA-Public Use
  Company Number: 2005115931

PATIENT
  Age: 82 Year
  Sex: Female

DRUGS (1)
  1. POLYMYXIN B SULFATE STERILE (POLYMYXIN B SULFATE) [Suspect]
     Indication: ILL-DEFINED DISORDER
     Dosage: 40000 I.U. (1 IN 1 TOTAL), INTRAVENOUS
     Route: 042
     Dates: start: 20050815, end: 20050815

REACTIONS (1)
  - WRONG DRUG ADMINISTERED [None]
